FAERS Safety Report 5479839-X (Version None)
Quarter: 2007Q4

REPORT INFORMATION
  Report Type: 
  Country: None (occurrence: None)
  Receive Date: 20071008
  Receipt Date: 20071001
  Transmission Date: 20080405
  Serious: Yes (Death)
  Sender: FDA-Public Use
  Company Number: HK-GENENTECH-248801

PATIENT

DRUGS (1)
  1. RITUXAN [Suspect]
     Indication: THROMBOTIC MICROANGIOPATHY
     Dosage: 375 MG/M2, 2/WEEK

REACTIONS (1)
  - SEPSIS [None]
